FAERS Safety Report 21590762 (Version 6)
Quarter: 2024Q4

REPORT INFORMATION
  Report Type: Spontaneous
  Country: IN (occurrence: IN)
  Receive Date: 20221114
  Receipt Date: 20241223
  Transmission Date: 20250115
  Serious: Yes (Hospitalization)
  Sender: PFIZER
  Company Number: IN-PFIZER INC-202200649615

PATIENT
  Age: 61 Year
  Sex: Male
  Weight: 65 kg

DRUGS (9)
  1. INLYTA [Suspect]
     Active Substance: AXITINIB
     Indication: Metastatic renal cell carcinoma
     Dosage: 5 MG, 2X/DAY
     Route: 048
     Dates: start: 20220127
  2. INLYTA [Suspect]
     Active Substance: AXITINIB
     Dosage: 5 MG, DAILY (3MG IN THE MORNING AND 2 MG IN THE NIGHT FOR TWO TO FOUR WEEKS)
     Dates: start: 20220428
  3. INLYTA [Suspect]
     Active Substance: AXITINIB
     Dosage: UNK, ALTERNATE DAY(5 MG 1-0-1 AND 1 MG 3-0-2 ON ALTERNATE DAYS X 4 MONTHS)
  4. INLYTA [Suspect]
     Active Substance: AXITINIB
     Dosage: 5 MG, 2X/DAY
     Route: 048
  5. INLYTA [Suspect]
     Active Substance: AXITINIB
     Dosage: 4 MG -0- 4 MG X 1 MONTH
     Route: 048
  6. INLYTA [Suspect]
     Active Substance: AXITINIB
     Dosage: 1 MG, 3-0-3 X 3 MONTHS
     Route: 048
  7. INLYTA [Suspect]
     Active Substance: AXITINIB
     Dosage: 3 MG, 2X/DAY (FOR 3 MONTHS)
     Route: 048
  8. INLYTA [Suspect]
     Active Substance: AXITINIB
     Dosage: 1 MG
     Route: 048
  9. BAVENCIO [Suspect]
     Active Substance: AVELUMAB
     Indication: Renal cell carcinoma
     Dosage: 800 MG, ONCE IN A FORTNIGHT
     Dates: start: 202201

REACTIONS (10)
  - Throat irritation [Not Recovered/Not Resolved]
  - Ageusia [Not Recovered/Not Resolved]
  - Dyspepsia [Not Recovered/Not Resolved]
  - Gastrointestinal pain [Not Recovered/Not Resolved]
  - Diarrhoea [Not Recovered/Not Resolved]
  - Aphonia [Unknown]
  - Skin exfoliation [Unknown]
  - Drug intolerance [Unknown]
  - Off label use [Unknown]
  - Product use issue [Unknown]

NARRATIVE: CASE EVENT DATE: 20220428
